FAERS Safety Report 16071090 (Version 1)
Quarter: 2019Q1

REPORT INFORMATION
  Report Type: Spontaneous
  Country: US (occurrence: US)
  Receive Date: 20190314
  Receipt Date: 20190314
  Transmission Date: 20190418
  Serious: No
  Sender: FDA-Public Use
  Company Number: US-PFIZER INC-2019103890

PATIENT
  Age: 57 Year
  Sex: Female
  Weight: 53.52 kg

DRUGS (2)
  1. SILDENAFIL CITRATE. [Suspect]
     Active Substance: SILDENAFIL CITRATE
     Dosage: UNK
  2. REMODULIN [Suspect]
     Active Substance: TREPROSTINIL
     Indication: PULMONARY ARTERIAL HYPERTENSION
     Dosage: UNK (20 NG/KG/MIN)
     Route: 042
     Dates: start: 20181108

REACTIONS (2)
  - Headache [Unknown]
  - Abdominal pain upper [Unknown]
